FAERS Safety Report 8233425-7 (Version None)
Quarter: 2012Q1

REPORT INFORMATION
  Report Type: 
  Country: None (occurrence: None)
  Receive Date: 20120326
  Receipt Date: 20120315
  Transmission Date: 20120608
  Serious: Yes (Hospitalization)
  Sender: FDA-Public Use
  Company Number: US-CELGENEUS-163-21880-12031985

PATIENT
  Sex: Male

DRUGS (2)
  1. STEROIDS [Concomitant]
     Route: 065
  2. REVLIMID [Suspect]
     Indication: MULTIPLE MYELOMA
     Dosage: 25 MILLIGRAM
     Route: 048
     Dates: start: 20120203

REACTIONS (2)
  - BLOOD GLUCOSE INCREASED [None]
  - FULL BLOOD COUNT DECREASED [None]
